FAERS Safety Report 7341893-8 (Version None)
Quarter: 2011Q1

REPORT INFORMATION
  Report Type: 
  Country: None (occurrence: None)
  Receive Date: 20110309
  Receipt Date: 20110303
  Transmission Date: 20110831
  Serious: No
  Sender: FDA-Public Use
  Company Number: JP-PFIZER INC-2011010414

PATIENT
  Age: 54 Year
  Sex: Female
  Weight: 50 kg

DRUGS (8)
  1. CHAMPIX [Suspect]
     Dosage: 0.5 MG, 2X/DAY
     Route: 048
     Dates: start: 20110110, end: 20110113
  2. MYSLEE [Concomitant]
  3. RIZE [Concomitant]
  4. DOGMATYL [Concomitant]
  5. SELBEX [Concomitant]
     Indication: DYSPEPSIA
  6. CHAMPIX [Suspect]
     Indication: SMOKING CESSATION THERAPY
     Dosage: 0.5 MG, 1X/DAY
     Route: 048
     Dates: start: 20110107, end: 20110109
  7. CHAMPIX [Suspect]
     Dosage: 0.5 MG, 2X/DAY
     Route: 048
     Dates: start: 20110117
  8. CHAMPIX [Suspect]
     Dosage: 1 MG, 2X/DAY
     Route: 048
     Dates: start: 20110114, end: 20110116

REACTIONS (3)
  - BODY TEMPERATURE DECREASED [None]
  - ABDOMINAL PAIN UPPER [None]
  - FEELING COLD [None]
